FAERS Safety Report 18142374 (Version 1)
Quarter: 2020Q3

REPORT INFORMATION
  Report Type: Spontaneous
  Country: RU (occurrence: RU)
  Receive Date: 20200813
  Receipt Date: 20200813
  Transmission Date: 20201103
  Serious: Yes (Other)
  Sender: FDA-Public Use
  Company Number: RU-MERZ PHARMACEUTICALS GMBH-20-02731

PATIENT
  Age: 68 Year
  Sex: Female

DRUGS (3)
  1. XEOMIN [Suspect]
     Active Substance: INCOBOTULINUMTOXINA
     Indication: TORTICOLLIS
  2. DYSPORT [Concomitant]
     Active Substance: ABOBOTULINUMTOXINA
  3. XEOMIN [Suspect]
     Active Substance: INCOBOTULINUMTOXINA
     Indication: DYSTONIA
     Dosage: 400 UNITS/8 ML
     Route: 030
     Dates: start: 2011

REACTIONS (5)
  - Throat irritation [Not Recovered/Not Resolved]
  - Lethargy [Not Recovered/Not Resolved]
  - Headache [Not Recovered/Not Resolved]
  - Therapeutic response decreased [Unknown]
  - Cough [Not Recovered/Not Resolved]
